FAERS Safety Report 23288525 (Version 1)
Quarter: 2023Q4

REPORT INFORMATION
  Report Type: Spontaneous
  Country: FR (occurrence: FR)
  Receive Date: 20231212
  Receipt Date: 20231212
  Transmission Date: 20240109
  Serious: Yes (Hospitalization, Other)
  Sender: FDA-Public Use
  Company Number: FR-HIKMA PHARMACEUTICALS USA INC.-FR-H14001-23-68030

PATIENT

DRUGS (25)
  1. CARBOPLATIN [Suspect]
     Active Substance: CARBOPLATIN
     Indication: Product used for unknown indication
     Dosage: 5 DAY, ONE OF EACH 28-DAY CYCLE
     Route: 042
     Dates: start: 20230221
  2. RETIFANLIMAB [Suspect]
     Active Substance: RETIFANLIMAB
     Indication: Anal cancer
     Dosage: UNK
     Route: 042
  3. PACLITAXEL [Suspect]
     Active Substance: PACLITAXEL
     Indication: Anal cancer
     Dosage: 80 MILLIGRAM/SQ. METER
     Route: 042
  4. GLUTAMIC ACID [Concomitant]
     Active Substance: GLUTAMIC ACID
     Indication: Product used for unknown indication
     Dosage: UNK
     Route: 065
  5. GLYCINE MAX SEED OIL [Concomitant]
     Indication: Product used for unknown indication
     Dosage: UNK
     Route: 065
  6. HISTIDINE MONOHYDROCHLORIDE [Concomitant]
     Active Substance: HISTIDINE MONOHYDROCHLORIDE
     Indication: Product used for unknown indication
     Dosage: UNK
     Route: 065
  7. ISOLEUCINE [Concomitant]
     Active Substance: ISOLEUCINE
     Indication: Product used for unknown indication
     Dosage: UNK
     Route: 065
  8. LEUCINE [Concomitant]
     Active Substance: LEUCINE
     Indication: Product used for unknown indication
     Dosage: UNK
     Route: 065
  9. LYSINE HYDROCHLORIDE [Concomitant]
     Active Substance: LYSINE HYDROCHLORIDE
     Indication: Product used for unknown indication
     Dosage: UNK
     Route: 065
  10. MAGNESIUM ACETATE TETRAHYDRATE [Concomitant]
     Active Substance: MAGNESIUM ACETATE TETRAHYDRATE
     Indication: Product used for unknown indication
     Dosage: UNK
     Route: 065
  11. METHIONINE [Concomitant]
     Active Substance: METHIONINE
     Indication: Product used for unknown indication
     Dosage: UNK
     Route: 065
  12. METOCLOPRAMIDE [Concomitant]
     Active Substance: METOCLOPRAMIDE
     Indication: Product used for unknown indication
     Dosage: UNK
     Route: 065
     Dates: start: 20230628
  13. PHENYLALANINE [Concomitant]
     Active Substance: PHENYLALANINE
     Indication: Product used for unknown indication
     Dosage: UNK
     Route: 065
  14. POTASSIUM ACETATE [Concomitant]
     Active Substance: POTASSIUM ACETATE
     Indication: Product used for unknown indication
     Dosage: UNK
     Route: 065
  15. PROLINE [Concomitant]
     Active Substance: PROLINE
     Indication: Product used for unknown indication
     Dosage: UNK
     Route: 065
  16. SERINE [Concomitant]
     Active Substance: SERINE
     Indication: Product used for unknown indication
     Dosage: UNK
     Route: 065
  17. SODIUM ACETATE [Concomitant]
     Active Substance: SODIUM ACETATE
     Indication: Product used for unknown indication
     Dosage: UNK
     Route: 065
  18. SODIUM CHLORIDE [Concomitant]
     Active Substance: SODIUM CHLORIDE
     Indication: Product used for unknown indication
     Dosage: UNK
     Route: 065
  19. SODIUM HYDROXIDE [Concomitant]
     Active Substance: SODIUM HYDROXIDE
     Indication: Product used for unknown indication
     Dosage: UNK
     Route: 065
  20. SODIUM PHOSPHATE, MONOBASIC [Concomitant]
     Active Substance: SODIUM PHOSPHATE, MONOBASIC
     Indication: Product used for unknown indication
     Dosage: UNK
     Route: 065
  21. THREONINE [Concomitant]
     Active Substance: THREONINE
     Indication: Product used for unknown indication
     Dosage: UNK
     Route: 065
  22. TRYPTOPHAN [Concomitant]
     Active Substance: TRYPTOPHAN
     Indication: Product used for unknown indication
     Dosage: UNK
     Route: 065
  23. VALINE [Concomitant]
     Active Substance: VALINE
     Indication: Product used for unknown indication
     Dosage: UNK
     Route: 065
  24. FILGRASTIM [Concomitant]
     Active Substance: FILGRASTIM
     Indication: Product used for unknown indication
     Dosage: UNK
     Route: 065
  25. ZINC ACETATE DIHYDRATE [Concomitant]
     Indication: Product used for unknown indication
     Dosage: UNK
     Route: 065

REACTIONS (2)
  - Diarrhoea [Recovered/Resolved]
  - Malnutrition [Not Recovered/Not Resolved]
